FAERS Safety Report 8839340 (Version 4)
Quarter: 2012Q4

REPORT INFORMATION
  Report Type: 
  Country: US (occurrence: US)
  Receive Date: 20121015
  Receipt Date: 20121106
  Transmission Date: 20130627
  Serious: Yes (Life-Threatening, Hospitalization, Other)
  Sender: FDA-Public Use
  Company Number: US-GENZYME-CLOF-1002354

PATIENT
  Age: 8 None
  Sex: Male
  Weight: 24.1 kg

DRUGS (10)
  1. CLOLAR [Suspect]
     Indication: LYMPHOCYTIC LEUKAEMIA
     Dosage: UNK
     Route: 042
     Dates: start: 20120801
  2. CLOLAR [Suspect]
     Dosage: 30 mg/m2, UNK (days 29-33)
     Route: 042
     Dates: start: 20120830, end: 20120903
  3. CYCLOPHOSPHAMIDE [Suspect]
     Indication: LYMPHOCYTIC LEUKAEMIA
     Dosage: UNK
     Route: 065
     Dates: start: 20120801
  4. CYCLOPHOSPHAMIDE [Suspect]
     Dosage: 440 mg/m2, UNK (days 29-33)
     Route: 042
     Dates: start: 20120830, end: 20120903
  5. VP-16 [Suspect]
     Indication: LYMPHOCYTIC LEUKAEMIA
     Dosage: UNK
     Route: 042
     Dates: start: 20120801
  6. VP-16 [Suspect]
     Dosage: 100 mg/m2, UNK (day 29-33)
     Route: 042
     Dates: start: 20120830, end: 20120903
  7. VINCRISTINE [Suspect]
     Indication: LYMPHOCYTIC LEUKAEMIA
     Dosage: UNK
     Route: 065
     Dates: start: 20120801
  8. VINCRISTINE [Suspect]
     Dosage: 1.5 mg/m2, UNK, Day-43 + 50
     Route: 065
  9. PEGASPARGASE [Suspect]
     Indication: LYMPHOCYTIC LEUKAEMIA
     Dosage: UNK
     Route: 065
     Dates: start: 20120801
  10. PEGASPARGASE [Suspect]
     Dosage: 2500 iu, UNK, Day-43
     Route: 065

REACTIONS (14)
  - Hypokalaemia [Unknown]
  - Sinusitis [Unknown]
  - Bone marrow failure [Unknown]
  - Febrile neutropenia [Recovered/Resolved]
  - Clostridium difficile colitis [Unknown]
  - Pyrexia [Unknown]
  - Oral pain [Unknown]
  - Malnutrition [Unknown]
  - Decreased appetite [Unknown]
  - Metastases to lymph nodes [Unknown]
  - Hypophagia [Recovered/Resolved]
  - Cough [Not Recovered/Not Resolved]
  - Alpha haemolytic streptococcal infection [Recovered/Resolved]
  - Abdominal pain [Recovered/Resolved]
